FAERS Safety Report 20170809 (Version 1)
Quarter: 2021Q4

REPORT INFORMATION
  Report Type: Spontaneous
  Country: US (occurrence: US)
  Receive Date: 20211210
  Receipt Date: 20211210
  Transmission Date: 20220303
  Serious: No
  Sender: FDA-Public Use
  Company Number: US-BEH-2021139202

PATIENT
  Sex: Female

DRUGS (3)
  1. HIZENTRA [Suspect]
     Active Substance: HUMAN IMMUNOGLOBULIN G
     Indication: Immunodeficiency common variable
     Dosage: 10 GRAM, QOW
     Route: 058
     Dates: start: 202002
  2. HIZENTRA [Suspect]
     Active Substance: HUMAN IMMUNOGLOBULIN G
     Indication: Rheumatoid arthritis
     Dosage: 4 GRAM, QOW
     Route: 058
     Dates: start: 202002
  3. ORENCIA [Concomitant]
     Active Substance: ABATACEPT

REACTIONS (4)
  - Joint swelling [Unknown]
  - Arthralgia [Unknown]
  - No adverse event [Unknown]
  - Off label use [Unknown]
